FAERS Safety Report 5483127-5 (Version None)
Quarter: 2007Q4

REPORT INFORMATION
  Report Type: 
  Country: None (occurrence: None)
  Receive Date: 20071011
  Receipt Date: 20060511
  Transmission Date: 20080405
  Serious: Yes (Hospitalization)
  Sender: FDA-Public Use
  Company Number: GB-MERCK-0605GBR00057

PATIENT
  Age: 46 Year
  Sex: Male

DRUGS (6)
  1. ZOCOR [Suspect]
     Indication: HYPERCHOLESTEROLAEMIA
     Route: 048
  2. RAMIPRIL [Suspect]
     Indication: HYPERTENSION
     Route: 048
  3. CLOZAPINE [Suspect]
     Route: 048
     Dates: start: 19951031
  4. AMISULPRIDE [Concomitant]
     Indication: SCHIZOPHRENIA
     Route: 065
     Dates: start: 20040831, end: 20060225
  5. ATENOLOL [Concomitant]
     Indication: HYPERTENSION
     Route: 065
  6. ASPIRIN [Concomitant]
     Indication: PROPHYLAXIS
     Route: 065

REACTIONS (2)
  - PANCREATITIS [None]
  - RENAL FAILURE [None]
